FAERS Safety Report 21247704 (Version 1)
Quarter: 2022Q3

REPORT INFORMATION
  Report Type: Spontaneous
  Country: US (occurrence: None)
  Receive Date: 20220824
  Receipt Date: 20220824
  Transmission Date: 20221026
  Serious: No
  Sender: FDA-Public Use
  Company Number: US-Emmaus Medical, Inc.-EMM202204-000073

PATIENT
  Age: 10 Year
  Sex: Male
  Weight: 32.65 kg

DRUGS (1)
  1. ENDARI [Suspect]
     Active Substance: GLUTAMINE
     Indication: Sickle cell disease
     Dosage: 10 G (2 PACKETS BY MOUTH)
     Route: 048

REACTIONS (1)
  - Product dose omission issue [Unknown]
